FAERS Safety Report 19500472 (Version 1)
Quarter: 2021Q3

REPORT INFORMATION
  Report Type: Spontaneous
  Country: AT (occurrence: AT)
  Receive Date: 20210706
  Receipt Date: 20210706
  Transmission Date: 20211014
  Serious: Yes (Other)
  Sender: FDA-Public Use
  Company Number: AT-AMGEN-AUTNI2021100339

PATIENT

DRUGS (14)
  1. DENOSUMAB [Suspect]
     Active Substance: DENOSUMAB
     Indication: HER2 POSITIVE BREAST CANCER
     Dosage: 120 MG EVERY 4 WEEKS
     Route: 058
     Dates: start: 20190104
  2. PERTUZUMAB. [Suspect]
     Active Substance: PERTUZUMAB
     Dosage: 420 MG EVERY 4 WEEKS (MOST RECENT DOSE PRIOR TO THE EVENT: 13/NOV/2018)
     Route: 042
     Dates: start: 20190918
  3. EXEMESTANE. [Suspect]
     Active Substance: EXEMESTANE
     Indication: HER2 POSITIVE BREAST CANCER
     Dosage: UNK
     Route: 065
  4. PSYCHOPAX [Concomitant]
     Active Substance: DIAZEPAM
     Dosage: ONGOING = CHECKED
     Dates: start: 20181108
  5. OLEOVIT [DEXPANTHENOL;RETINOL] [Concomitant]
     Dosage: ONGOING = CHECKED
     Dates: start: 20181108
  6. PANTOPRAZOLE [Concomitant]
     Active Substance: PANTOPRAZOLE
     Dosage: ONGOING = CHECKED
     Dates: start: 20181108
  7. TRASTUZUMAB. [Suspect]
     Active Substance: TRASTUZUMAB
     Indication: BREAST CANCER
     Dosage: 330 MG EVERY 3 WEEKS (MOST RECENT DOSE PRIOR TO THE EVENT: 13/NOV/2018)
     Route: 041
     Dates: start: 20181113, end: 20190918
  8. PREGABALIN. [Concomitant]
     Active Substance: PREGABALIN
     Dosage: ONGOING = CHECKED
  9. PACLITAXEL LIPOSOME [Suspect]
     Active Substance: PACLITAXEL
     Indication: HER2 POSITIVE BREAST CANCER
     Dosage: 199 MG WEEKLY (MOST RECENT DOSE WAS RECEIVED ON 15/MAY/2019)
     Route: 042
     Dates: start: 20181215
  10. PACLITAXEL. [Suspect]
     Active Substance: PACLITAXEL
     Indication: HER2 POSITIVE BREAST CANCER
     Dosage: 199 MG; WEEKLY
     Route: 042
     Dates: start: 20181205, end: 20190515
  11. EXEMESTANE. [Suspect]
     Active Substance: EXEMESTANE
     Dosage: 25 MG (FREQUENCY: O.D. ? ONCE DAILY)
     Route: 048
     Dates: start: 20181108
  12. PERTUZUMAB. [Suspect]
     Active Substance: PERTUZUMAB
     Indication: HER2 POSITIVE BREAST CANCER
     Dosage: 420 MG EVERY 3 WEEKS (MOST RECENT DOSE PRIOR TO THE EVENT: 13/NOV/2018)
     Route: 042
     Dates: start: 20181113
  13. TRASTUZUMAB. [Suspect]
     Active Substance: TRASTUZUMAB
     Dosage: 330 MG EVERY 4 WEEKS (MOST RECENT DOSE PRIOR TO THE EVENT: 13/NOV/2018)  320 MILLIGRAM
     Route: 041
     Dates: start: 20190918
  14. PACLITAXEL. [Suspect]
     Active Substance: PACLITAXEL
     Dosage: 199 MG; WEEKLY
     Route: 042
     Dates: start: 20181205, end: 20190515

REACTIONS (4)
  - Stomatitis [Recovered/Resolved]
  - Arthralgia [Recovered/Resolved]
  - Off label use [Unknown]
  - Polyneuropathy [Recovered/Resolved]

NARRATIVE: CASE EVENT DATE: 20181207
